FAERS Safety Report 17421524 (Version 2)
Quarter: 2020Q1

REPORT INFORMATION
  Report Type: Spontaneous
  Country: US (occurrence: US)
  Receive Date: 20200214
  Receipt Date: 20200302
  Transmission Date: 20200409
  Serious: Yes (Hospitalization, Other)
  Sender: FDA-Public Use
  Company Number: US-ELI_LILLY_AND_COMPANY-US202002006421

PATIENT
  Age: 13 Year
  Sex: Female
  Weight: 99 kg

DRUGS (4)
  1. TADALAFIL. [Suspect]
     Active Substance: TADALAFIL
     Indication: PULMONARY HYPERTENSION
     Dosage: 40 MG, UNKNOWN
     Route: 065
     Dates: start: 20181102, end: 20200102
  2. WARFARIN [Suspect]
     Active Substance: WARFARIN
     Indication: PULMONARY HYPERTENSION
     Dosage: UNK, IN THE MORNING
     Route: 065
     Dates: start: 20181101, end: 20190416
  3. AMBRISENTAN [Suspect]
     Active Substance: AMBRISENTAN
     Indication: PULMONARY HYPERTENSION
     Dosage: 10 MG, UNKNOWN
     Route: 065
     Dates: start: 20181023, end: 20190331
  4. REMODULIN [Suspect]
     Active Substance: TREPROSTINIL
     Indication: PULMONARY ARTERIAL HYPERTENSION
     Dosage: 0.08 UG/KG, UNKNOWN
     Route: 065
     Dates: start: 20181116, end: 20200114

REACTIONS (12)
  - Chest pain [Recovered/Resolved]
  - Flushing [Recovered/Resolved]
  - Hepatic failure [Not Recovered/Not Resolved]
  - Mobility decreased [Recovered/Resolved]
  - Dyspnoea [Recovered/Resolved]
  - Ill-defined disorder [Recovered/Resolved]
  - Muscular weakness [Recovered/Resolved]
  - Hepatic enzyme increased [Unknown]
  - Toxicity to various agents [Recovered/Resolved]
  - Hypotension [Recovered/Resolved]
  - Ischaemia [Recovered/Resolved]
  - Ischaemic hepatitis [Recovered/Resolved]

NARRATIVE: CASE EVENT DATE: 201812
